FAERS Safety Report 7348930-5 (Version None)
Quarter: 2011Q1

REPORT INFORMATION
  Report Type: 
  Country: None (occurrence: None)
  Receive Date: 20110314
  Receipt Date: 20110224
  Transmission Date: 20110831
  Serious: No
  Sender: FDA-Public Use
  Company Number: US-ROXANE LABORATORIES, INC.-2011-RO-00226RO

PATIENT
  Sex: Male
  Weight: 99 kg

DRUGS (4)
  1. FLUTICASONE PROPIONATE [Suspect]
     Indication: THROAT IRRITATION
  2. EFFEXOR XR [Concomitant]
     Indication: ANXIETY
     Dosage: 37.5 MG
     Route: 048
     Dates: start: 20090801, end: 20110215
  3. EFFEXOR XR [Concomitant]
     Indication: DEPRESSION
     Dosage: 75 MG
     Route: 048
     Dates: start: 20110215
  4. FLUTICASONE PROPIONATE [Suspect]
     Indication: UPPER-AIRWAY COUGH SYNDROME
     Route: 045
     Dates: start: 20100729, end: 20110201

REACTIONS (12)
  - INSOMNIA [None]
  - IRRITABILITY [None]
  - CRYING [None]
  - ARTHRALGIA [None]
  - TENSION [None]
  - DRY EYE [None]
  - DEPRESSION [None]
  - NERVOUSNESS [None]
  - CONSTIPATION [None]
  - ANXIETY [None]
  - MUSCLE SPASMS [None]
  - DRY MOUTH [None]
